FAERS Safety Report 9485970 (Version 1)
Quarter: 2013Q3

REPORT INFORMATION
  Report Type: Spontaneous
  Country: US (occurrence: US)
  Receive Date: 20130829
  Receipt Date: 20130829
  Transmission Date: 20140515
  Serious: No
  Sender: FDA-Public Use
  Company Number: US-TEVA-428786USA

PATIENT
  Sex: Female
  Weight: 50.85 kg

DRUGS (1)
  1. PARAGARD 380A [Suspect]
     Indication: CONTRACEPTION
     Dates: start: 20130723

REACTIONS (3)
  - Pain [Recovered/Resolved]
  - Uterine spasm [Recovered/Resolved]
  - Metrorrhagia [Not Recovered/Not Resolved]
